FAERS Safety Report 6912258-5 (Version None)
Quarter: 2010Q3

REPORT INFORMATION
  Report Type: 
  Country: None (occurrence: None)
  Receive Date: 20100806
  Receipt Date: 20080208
  Transmission Date: 20110219
  Serious: No
  Sender: FDA-Public Use
  Company Number: US-PFIZER INC-2008009776

PATIENT
  Sex: Female
  Weight: 79.545 kg

DRUGS (5)
  1. DETROL LA [Suspect]
     Indication: BLADDER SPASM
     Dates: start: 20030101
  2. ENDURON [Concomitant]
  3. NEURONTIN [Concomitant]
  4. ALL OTHER THERAPEUTIC PRODUCTS [Concomitant]
  5. ARICEPT [Concomitant]

REACTIONS (1)
  - URINARY INCONTINENCE [None]
